FAERS Safety Report 8383199-4 (Version None)
Quarter: 2012Q2

REPORT INFORMATION
  Report Type: 
  Country: None (occurrence: None)
  Receive Date: 20120524
  Receipt Date: 20120515
  Transmission Date: 20120825
  Serious: Yes (Other)
  Sender: FDA-Public Use
  Company Number: US-BRISTOL-MYERS SQUIBB COMPANY-16594657

PATIENT
  Age: 43 Year
  Sex: Female
  Weight: 79 kg

DRUGS (4)
  1. LYRICA [Interacting]
     Indication: MIGRAINE
     Dosage: 100MG(3 IN 1D)2005-2006 100MG:2010-ONG 200MG:UNK DATE
     Dates: start: 20050101
  2. LYRICA [Interacting]
     Indication: FIBROMYALGIA
     Dosage: 100MG(3 IN 1D)2005-2006 100MG:2010-ONG 200MG:UNK DATE
     Dates: start: 20050101
  3. ABILIFY [Suspect]
     Indication: BIPOLAR DISORDER
     Dates: start: 20090101, end: 20120101
  4. ABILIFY [Interacting]
     Indication: PSYCHOTIC DISORDER
     Dates: start: 20090101, end: 20120101

REACTIONS (26)
  - PAIN [None]
  - DIZZINESS [None]
  - OEDEMA [None]
  - VERTIGO [None]
  - DEPRESSION [None]
  - SUICIDAL IDEATION [None]
  - ARTHRALGIA [None]
  - DRUG INTERACTION [None]
  - INAPPROPRIATE AFFECT [None]
  - MEMORY IMPAIRMENT [None]
  - WEIGHT INCREASED [None]
  - MOOD ALTERED [None]
  - BACK PAIN [None]
  - STRESS [None]
  - TREMOR [None]
  - LIMB DISCOMFORT [None]
  - HEADACHE [None]
  - PALPITATIONS [None]
  - FEELING ABNORMAL [None]
  - BALANCE DISORDER [None]
  - DYSGRAPHIA [None]
  - DRY MOUTH [None]
  - MUSCLE SPASMS [None]
  - DISTURBANCE IN ATTENTION [None]
  - CONFUSIONAL STATE [None]
  - ANXIETY [None]
